FAERS Safety Report 10135592 (Version 3)
Quarter: 2014Q2

REPORT INFORMATION
  Report Type: Report from Study
  Country: CA (occurrence: CA)
  Receive Date: 20140428
  Receipt Date: 20140430
  Transmission Date: 20141212
  Serious: Yes (Hospitalization, Other)
  Sender: FDA-Public Use
  Company Number: CA-ABBVIE-13P-028-1091362-00

PATIENT
  Age: 81 Year
  Sex: Male

DRUGS (13)
  1. HUMIRA [Suspect]
     Indication: RHEUMATOID ARTHRITIS
     Route: 058
     Dates: start: 20080206, end: 201307
  2. ATORVASTATIN [Concomitant]
     Indication: PRODUCT USED FOR UNKNOWN INDICATION
     Dosage: DAILY
  3. CAL D [Concomitant]
     Indication: PRODUCT USED FOR UNKNOWN INDICATION
  4. BROMAZEPAM [Concomitant]
     Indication: PRODUCT USED FOR UNKNOWN INDICATION
     Dosage: 1.5 MG DAILY
  5. PLAVIX [Concomitant]
     Indication: PRODUCT USED FOR UNKNOWN INDICATION
     Dosage: 75 MG DAILY
  6. COVERSYL [Concomitant]
     Indication: PRODUCT USED FOR UNKNOWN INDICATION
  7. ALENDRONATE [Concomitant]
     Indication: PRODUCT USED FOR UNKNOWN INDICATION
     Dosage: WEEKLY
  8. FOLIC ACID [Concomitant]
     Indication: PRODUCT USED FOR UNKNOWN INDICATION
  9. METHOTREXATE [Concomitant]
     Indication: PRODUCT USED FOR UNKNOWN INDICATION
  10. TYLENOL [Concomitant]
     Indication: PRODUCT USED FOR UNKNOWN INDICATION
  11. PLAQUENIL [Concomitant]
     Indication: PRODUCT USED FOR UNKNOWN INDICATION
  12. DOMPERIDONE [Concomitant]
     Indication: PRODUCT USED FOR UNKNOWN INDICATION
  13. UNKNOWN MEDICATION [Concomitant]
     Indication: PRODUCT USED FOR UNKNOWN INDICATION

REACTIONS (13)
  - Heart injury [Unknown]
  - General physical health deterioration [Unknown]
  - Body temperature decreased [Unknown]
  - Delirium [Unknown]
  - Lung neoplasm malignant [Unknown]
  - Confusional state [Unknown]
  - Bronchitis [Unknown]
  - Bronchitis [Recovering/Resolving]
  - Lung neoplasm malignant [Unknown]
  - Constipation [Unknown]
  - Lower respiratory tract inflammation [Unknown]
  - Cough [Unknown]
  - Productive cough [Unknown]
